FAERS Safety Report 9931550 (Version 1)
Quarter: 2014Q1

REPORT INFORMATION
  Report Type: Spontaneous
  Country: FR (occurrence: None)
  Receive Date: 20140224
  Receipt Date: 20140224
  Transmission Date: 20141002
  Serious: Yes (Other)
  Sender: FDA-Public Use
  Company Number: 2014-FR-001355

PATIENT
  Age: 52 Year
  Sex: Male
  Weight: 112 kg

DRUGS (11)
  1. ASPARAGINASE [Suspect]
     Indication: B PRECURSOR TYPE ACUTE LEUKAEMIA
     Route: 042
  2. CORTICOSTEROIDS [Concomitant]
  3. DAUNORUBICIN (DAUNORUBICIN) [Concomitant]
  4. DAUNORUBICIN (DAUNORUBICIN) [Concomitant]
  5. VINCRISTINE (VINCRISTINE) [Concomitant]
  6. CYCLOPHOSPHAMIDE (CYCLOPHOSPHAMIDE) [Concomitant]
  7. METHOTREXATE (METHOTREXATE) [Concomitant]
  8. METHYLPREDNISOLONE (METHYLPREDNISOLONE) [Concomitant]
  9. CYTARABINE (CYTARABINE) [Concomitant]
  10. GRANULOCYTE COLONY-STIMULATING FACTOR NOS [Concomitant]
  11. ACETYLSALICYLIC ACID (ACETYLSALICYLIC ACID) [Concomitant]

REACTIONS (4)
  - Hepatic steatosis [None]
  - Hepatomegaly [None]
  - Pneumocystis jirovecii pneumonia [None]
  - Toxicity to various agents [None]
